FAERS Safety Report 4490484-5 (Version None)
Quarter: 2004Q4

REPORT INFORMATION
  Report Type: 
  Country: None (occurrence: None)
  Receive Date: 20041028
  Receipt Date: 20041020
  Transmission Date: 20050328
  Serious: Yes (Hospitalization, Other)
  Sender: FDA-Public Use
  Company Number: 2004226515FR

PATIENT
  Age: 34 Year
  Sex: Male
  Weight: 70 kg

DRUGS (13)
  1. ZYVOXID (LINEZOLID) SOLUTION, STERILE [Suspect]
     Indication: STAPHYLOCOCCAL INFECTION
     Dosage: 600 MG, BID, IV
     Route: 042
  2. ZYVOXID (LINEZOLID) TABLET [Suspect]
     Indication: STAPHYLOCOCCAL INFECTION
     Dosage: 600 , ORAL
     Route: 048
  3. PREDNISOLONE [Concomitant]
  4. OMEPRAZOLE [Concomitant]
  5. OXEOL (BAMBUTEROL HYDROCHLORIDE) [Concomitant]
  6. ATARAX [Concomitant]
  7. DIFFU K [Concomitant]
  8. ZYRTEC [Concomitant]
  9. GAVISCON [Concomitant]
  10. AMIKACIN [Concomitant]
  11. FORTUM (CEFTAZIDIME PENTAHYDRATE) [Concomitant]
  12. VANCOMYCIN [Concomitant]
  13. SALBUTAMOL SULFATE (SALBUTAMOL SULFATE) [Concomitant]

REACTIONS (2)
  - CERVICAL ROOT PAIN [None]
  - RHABDOMYOLYSIS [None]
